FAERS Safety Report 12380985 (Version 1)
Quarter: 2016Q2

REPORT INFORMATION
  Report Type: Report from Study
  Country: US (occurrence: US)
  Receive Date: 20160518
  Receipt Date: 20160518
  Transmission Date: 20160815
  Serious: Yes (Other)
  Sender: FDA-Public Use
  Company Number: US-BAXALTA-2016BLT003369

PATIENT
  Sex: Female

DRUGS (1)
  1. GAMMAGARD S/D [Suspect]
     Active Substance: HUMAN IMMUNOGLOBULIN G
     Indication: PRIMARY IMMUNODEFICIENCY SYNDROME
     Dosage: UNK
     Route: 042

REACTIONS (7)
  - Hypersomnia [Unknown]
  - Fatigue [Unknown]
  - Central nervous system lesion [Unknown]
  - Headache [Unknown]
  - Adverse drug reaction [Unknown]
  - Nausea [Unknown]
  - Asthenia [Unknown]
